FAERS Safety Report 5985890-3 (Version None)
Quarter: 2008Q4

REPORT INFORMATION
  Report Type: 
  Country: None (occurrence: None)
  Receive Date: 20081203
  Receipt Date: 20081118
  Transmission Date: 20090506
  Serious: Yes (Life-Threatening, Hospitalization, Other)
  Sender: FDA-Public Use
  Company Number: US-2008-00021

PATIENT
  Age: 52 Year
  Sex: Male

DRUGS (7)
  1. LISINOPRIL [Suspect]
     Dosage: 20 MG QD
  2. CARVEDILOL [Suspect]
     Dosage: 6.23 MG OF TOPICAL GEL TWICE DAILY, TOPICAL
     Route: 061
  3. SPIRONOLACTONE [Suspect]
     Dosage: 25 MG TIW
  4. DEXAMETHASONE [Suspect]
     Dosage: 5 MG BID
  5. LIDOCAINE [Suspect]
  6. IBUPROFEN [Suspect]
     Dosage: 800 MG PRN
  7. FUROSEMIDE [Suspect]
     Dosage: 80 MG QD

REACTIONS (12)
  - BREATH ODOUR [None]
  - COMA [None]
  - CONJUNCTIVAL SCAR [None]
  - ORAL PAIN [None]
  - POOR PERSONAL HYGIENE [None]
  - SCAR [None]
  - SEPSIS [None]
  - SKIN DEPIGMENTATION [None]
  - SPEECH DISORDER [None]
  - SYMBLEPHARON [None]
  - TOXIC EPIDERMAL NECROLYSIS [None]
  - VISUAL ACUITY REDUCED [None]
